FAERS Safety Report 7718890-3 (Version None)
Quarter: 2011Q3

REPORT INFORMATION
  Report Type: 
  Country: None (occurrence: None)
  Receive Date: 20110830
  Receipt Date: 20110825
  Transmission Date: 20111222
  Serious: Yes (Other)
  Sender: FDA-Public Use
  Company Number: US-PFIZER INC-2011142303

PATIENT
  Sex: Male

DRUGS (6)
  1. COLCHICINE [Concomitant]
     Indication: GOUT
     Dosage: UNK
     Dates: start: 20041001
  2. CHANTIX [Suspect]
     Indication: SMOKING CESSATION THERAPY
     Dosage: 0.5MG AND1MG
     Dates: start: 20080201, end: 20080301
  3. SEROQUEL [Concomitant]
     Indication: SLEEP DISORDER
     Dosage: UNK
     Dates: start: 20060901
  4. WELLBUTRIN [Concomitant]
     Indication: DEPRESSION
     Dosage: UNK
     Dates: start: 20060401, end: 20080501
  5. ZOLOFT [Concomitant]
     Indication: DEPRESSION
     Dosage: UNK
     Dates: start: 20060401, end: 20090501
  6. INDOMETHACIN [Concomitant]
     Indication: GOUT
     Dosage: UNK
     Dates: start: 20041001

REACTIONS (11)
  - ANXIETY [None]
  - AMNESIA [None]
  - INSOMNIA [None]
  - PARANOIA [None]
  - DEPRESSION [None]
  - MOOD SWINGS [None]
  - SUICIDE ATTEMPT [None]
  - MANIA [None]
  - BIPOLAR DISORDER [None]
  - MENTAL DISORDER [None]
  - AGGRESSION [None]
